FAERS Safety Report 10101896 (Version 1)
Quarter: 2014Q2

REPORT INFORMATION
  Report Type: Spontaneous
  Country: DE (occurrence: DE)
  Receive Date: 20140424
  Receipt Date: 20140424
  Transmission Date: 20141212
  Serious: Yes (Hospitalization)
  Sender: FDA-Public Use
  Company Number: DE-AMGEN INC.-DEUCT2014028538

PATIENT
  Age: 70 Year
  Sex: Female
  Weight: 56 kg

DRUGS (3)
  1. PANITUMUMAB [Suspect]
     Indication: COLORECTAL CANCER
     Dosage: 360 MG, Q2WK
     Route: 042
     Dates: start: 20140303
  2. IRINOTECAN [Concomitant]
     Indication: COLORECTAL CANCER
     Dosage: 280 MG, Q2WK
     Route: 042
     Dates: start: 20140303
  3. ERYTHROMYCIN [Concomitant]
     Dosage: UNK UNK, QD
     Route: 061
     Dates: start: 20140302

REACTIONS (1)
  - Renal failure acute [Not Recovered/Not Resolved]
